FAERS Safety Report 14544608 (Version 1)
Quarter: 2018Q1

REPORT INFORMATION
  Report Type: Spontaneous
  Country: FR (occurrence: FR)
  Receive Date: 20180217
  Receipt Date: 20180217
  Transmission Date: 20180509
  Serious: Yes (Other)
  Sender: FDA-Public Use
  Company Number: FR-SUN PHARMACEUTICAL INDUSTRIES LTD-2018RR-163567

PATIENT
  Age: 46 Year
  Sex: Female
  Weight: 61 kg

DRUGS (5)
  1. PANTOPRAZOLE [Suspect]
     Active Substance: PANTOPRAZOLE
     Indication: PRODUCT USED FOR UNKNOWN INDICATION
     Dosage: ()
     Route: 048
  2. OPDIVO [Suspect]
     Active Substance: NIVOLUMAB
     Indication: ADENOCARCINOMA
     Dosage: ()
     Route: 042
     Dates: start: 20170829
  3. SORIATANE [Concomitant]
     Active Substance: ACITRETIN
     Indication: PRODUCT USED FOR UNKNOWN INDICATION
     Route: 065
  4. AUGMENTIN [Suspect]
     Active Substance: AMOXICILLIN\CLAVULANATE POTASSIUM
     Indication: BRONCHITIS
     Dosage: ()
     Route: 048
     Dates: start: 20171012, end: 20171022
  5. ATARAX [Concomitant]
     Active Substance: HYDROXYZINE HYDROCHLORIDE
     Indication: PRODUCT USED FOR UNKNOWN INDICATION
     Route: 065

REACTIONS (2)
  - Colitis [Not Recovered/Not Resolved]
  - Diarrhoea [Not Recovered/Not Resolved]

NARRATIVE: CASE EVENT DATE: 20171015
